FAERS Safety Report 5517435-6 (Version None)
Quarter: 2007Q4

REPORT INFORMATION
  Report Type: 
  Country: None (occurrence: None)
  Receive Date: 20071114
  Receipt Date: 20071105
  Transmission Date: 20080405
  Serious: Yes (Hospitalization)
  Sender: FDA-Public Use
  Company Number: FR-ASTRAZENECA-2007CG01548

PATIENT
  Age: 29257 Day
  Sex: Female

DRUGS (7)
  1. ARIMIDEX [Suspect]
     Indication: BREAST CANCER FEMALE
     Route: 048
     Dates: end: 20070928
  2. KARDEGIC [Concomitant]
     Dates: end: 20070901
  3. KARDEGIC [Concomitant]
     Dates: start: 20070928
  4. VASTAREL [Concomitant]
  5. KENZEN [Concomitant]
  6. STABLON [Concomitant]
  7. ALPRAZOLAM [Concomitant]

REACTIONS (1)
  - COLITIS ISCHAEMIC [None]
